FAERS Safety Report 5346181-7 (Version None)
Quarter: 2007Q2

REPORT INFORMATION
  Report Type: 
  Country: None (occurrence: None)
  Receive Date: 20070601
  Receipt Date: 20070518
  Transmission Date: 20071010
  Serious: Yes (Hospitalization)
  Sender: FDA-Public Use
  Company Number: 2007S1000132

PATIENT
  Age: 73 Year
  Sex: Female

DRUGS (7)
  1. ACITRETIN [Suspect]
     Indication: PSORIASIS
     Dosage: 10 MG; QD; PO
     Route: 048
     Dates: start: 20061110, end: 20070103
  2. COLCHICINE [Concomitant]
  3. AVAPRO [Concomitant]
  4. EPILIM [Concomitant]
  5. PHENYTOIN SODIUM [Concomitant]
  6. ATORVASTATIN [Concomitant]
  7. OXAZEPAM [Concomitant]

REACTIONS (5)
  - BLISTER [None]
  - FEELING HOT [None]
  - GENERALISED ERYTHEMA [None]
  - PEMPHIGOID [None]
  - PRURITUS GENERALISED [None]
